FAERS Safety Report 7200640-0 (Version None)
Quarter: 2010Q4

REPORT INFORMATION
  Report Type: 
  Country: None (occurrence: None)
  Receive Date: 20101228
  Receipt Date: 20101221
  Transmission Date: 20110411
  Serious: Yes (Death)
  Sender: FDA-Public Use
  Company Number: JP-PFIZER INC-JP-WYE-H18023610

PATIENT
  Age: 64 Year
  Sex: Female
  Weight: 60 kg

DRUGS (6)
  1. ZOSYN [Suspect]
     Indication: PNEUMONIA
     Dosage: 4.5 G, 3X/DAY
     Route: 041
     Dates: start: 20100126, end: 20100201
  2. SOL-MELCORT [Concomitant]
     Dosage: 500 MG, 1X/DAY
     Route: 041
     Dates: start: 20100126, end: 20100128
  3. IMMUNE GLOBULIN INTRAVENOUS (HUMAN) [Concomitant]
     Indication: PNEUMONIA
     Dosage: 5 G, 1X/DAY
     Route: 041
     Dates: start: 20100126, end: 20100128
  4. GASTER [Concomitant]
     Indication: PROPHYLAXIS
     Dosage: 2 UNK, 1X/DAY
     Dates: start: 20100126, end: 20100213
  5. ELASPOL [Concomitant]
     Dosage: 300 MG, 1X/DAY
     Route: 041
     Dates: start: 20100128, end: 20100213
  6. VFEND [Concomitant]
     Indication: INFECTION
     Dosage: 600 MG, 1X/DAY
     Route: 041
     Dates: start: 20100129, end: 20100203

REACTIONS (3)
  - CARDIAC FAILURE [None]
  - INTERSTITIAL LUNG DISEASE [None]
  - LIVER DISORDER [None]
